FAERS Safety Report 6244305-0 (Version None)
Quarter: 2009Q2

REPORT INFORMATION
  Report Type: 
  Country: None (occurrence: None)
  Receive Date: 20090625
  Receipt Date: 20070702
  Transmission Date: 20091009
  Serious: Yes (Other)
  Sender: FDA-Public Use
  Company Number: US-ASTRAZENECA-2006UW11803

PATIENT
  Age: 657 Month
  Sex: Male
  Weight: 128.8 kg

DRUGS (8)
  1. SEROQUEL [Suspect]
     Indication: SLEEP DISORDER
     Route: 048
     Dates: start: 20020201
  2. SEROQUEL [Suspect]
     Dosage: 25-200 MG
     Route: 048
     Dates: start: 20030430
  3. ABLIFY [Concomitant]
     Dates: start: 20030101
  4. TRAZODONE HCL [Concomitant]
     Dates: start: 20040101
  5. MARIJUANA [Concomitant]
     Dates: start: 19800101
  6. PAXIL CR [Concomitant]
     Dates: start: 20030430
  7. COMBIVENT [Concomitant]
     Dates: start: 20030610
  8. GLUCOVANCE [Concomitant]
     Dates: start: 20030610

REACTIONS (5)
  - DIABETES MELLITUS [None]
  - NEUROPATHY PERIPHERAL [None]
  - TARDIVE DYSKINESIA [None]
  - TYPE 2 DIABETES MELLITUS [None]
  - WEIGHT INCREASED [None]
